FAERS Safety Report 20842052 (Version 1)
Quarter: 2022Q2

REPORT INFORMATION
  Report Type: Spontaneous
  Country: US (occurrence: US)
  Receive Date: 20220518
  Receipt Date: 20220518
  Transmission Date: 20220721
  Serious: No
  Sender: FDA-Public Use
  Company Number: US-BION-009662

PATIENT

DRUGS (1)
  1. MOTRIN IB MIGRAINE [Suspect]
     Active Substance: IBUPROFEN
     Indication: Headache
     Dosage: STRENGTH: 200 MG

REACTIONS (1)
  - Product use in unapproved indication [Not Recovered/Not Resolved]
